FAERS Safety Report 8684381 (Version 3)
Quarter: 2014Q2

REPORT INFORMATION
  Report Type: Report from Study
  Country: CA (occurrence: CA)
  Receive Date: 20120726
  Receipt Date: 20140414
  Transmission Date: 20141212
  Serious: Yes (Other)
  Sender: FDA-Public Use
  Company Number: CA-ROCHE-1090070

PATIENT
  Age: 33 Year
  Sex: Female
  Weight: 68.1 kg

DRUGS (5)
  1. TOCILIZUMAB [Suspect]
     Indication: RHEUMATOID ARTHRITIS
     Route: 042
     Dates: start: 20101209
  2. FOLIC ACID [Concomitant]
  3. TYLENOL [Concomitant]
  4. MELOXICAM [Concomitant]
  5. METHOTREXATE [Concomitant]

REACTIONS (3)
  - Bunion operation [Unknown]
  - Pain in extremity [Not Recovered/Not Resolved]
  - Arthralgia [Not Recovered/Not Resolved]
